FAERS Safety Report 6511873-0 (Version None)
Quarter: 2009Q4

REPORT INFORMATION
  Report Type: 
  Country: None (occurrence: None)
  Receive Date: 20091222
  Receipt Date: 20091215
  Transmission Date: 20100525
  Serious: Yes (Other)
  Sender: FDA-Public Use
  Company Number: US-AMGEN-KDL376890

PATIENT
  Sex: Female
  Weight: 91.3 kg

DRUGS (7)
  1. ENBREL [Suspect]
     Indication: RHEUMATOID ARTHRITIS
     Route: 058
     Dates: start: 20091104, end: 20091118
  2. PLAQUENIL [Concomitant]
     Route: 048
     Dates: start: 20090730
  3. METHOTREXATE [Concomitant]
     Route: 048
     Dates: start: 20090429
  4. NIACIN [Concomitant]
  5. FISH OIL [Concomitant]
  6. PRILOSEC [Concomitant]
  7. SERTRALINE HCL [Concomitant]

REACTIONS (3)
  - BUTTERFLY RASH [None]
  - NAUSEA [None]
  - TACHYCARDIA [None]
